FAERS Safety Report 15349285 (Version 1)
Quarter: 2018Q3

REPORT INFORMATION
  Report Type: Spontaneous
  Country: FR (occurrence: FR)
  Receive Date: 20180904
  Receipt Date: 20180904
  Transmission Date: 20181010
  Serious: Yes (Hospitalization, Other)
  Sender: FDA-Public Use
  Company Number: FR-JNJFOC-20180707301

PATIENT
  Age: 5 Decade
  Sex: Female

DRUGS (9)
  1. AOTAL [Concomitant]
     Active Substance: ACAMPROSATE CALCIUM
     Indication: DEPENDENCE
     Route: 048
     Dates: start: 20180612
  2. XEPLION [Suspect]
     Active Substance: PALIPERIDONE PALMITATE
     Indication: SCHIZOPHRENIA
     Route: 030
     Dates: start: 20180701
  3. VALIUM [Concomitant]
     Active Substance: DIAZEPAM
     Indication: ANXIETY
     Route: 048
     Dates: start: 20180618
  4. XEPLION [Suspect]
     Active Substance: PALIPERIDONE PALMITATE
     Indication: SCHIZOPHRENIA
     Route: 030
     Dates: start: 20180627
  5. PAROXETINE. [Concomitant]
     Active Substance: PAROXETINE
     Indication: DEPRESSION
     Route: 048
     Dates: start: 20180518
  6. XEPLION [Suspect]
     Active Substance: PALIPERIDONE PALMITATE
     Indication: SCHIZOPHRENIA
     Route: 030
     Dates: start: 201701
  7. ACIDE FOLIQUE [Concomitant]
     Active Substance: FOLIC ACID
     Indication: FOLATE DEFICIENCY
     Route: 048
     Dates: start: 20180525
  8. ESPERAL [Concomitant]
     Active Substance: DISULFIRAM
     Indication: DEPENDENCE
     Route: 048
     Dates: start: 20180619
  9. DEPAKOTE [Concomitant]
     Active Substance: DIVALPROEX SODIUM
     Indication: AFFECTIVE DISORDER
     Route: 048
     Dates: start: 20180529

REACTIONS (7)
  - Hypotension [Recovering/Resolving]
  - Medication error [Unknown]
  - Electrocardiogram QT prolonged [Unknown]
  - Fatigue [Recovering/Resolving]
  - Hospitalisation [Unknown]
  - Accidental overdose [Unknown]
  - Anxiety [Recovering/Resolving]

NARRATIVE: CASE EVENT DATE: 20180419
